FAERS Safety Report 17187323 (Version 1)
Quarter: 2019Q4

REPORT INFORMATION
  Report Type: Report from Study
  Country: DE (occurrence: DE)
  Receive Date: 20191220
  Receipt Date: 20191220
  Transmission Date: 20200122
  Serious: Yes (Other)
  Sender: FDA-Public Use
  Company Number: DE-BAXTER-2019BAX025928

PATIENT
  Age: 58 Year
  Sex: Female

DRUGS (45)
  1. ONDANSETRON [Concomitant]
     Active Substance: ONDANSETRON
     Indication: PRODUCT USED FOR UNKNOWN INDICATION
     Dosage: ONGOING
     Route: 042
     Dates: start: 20190215, end: 20190605
  2. ACICLOVIR [Concomitant]
     Active Substance: ACYCLOVIR
     Route: 048
     Dates: start: 20190910
  3. DOXIL [Suspect]
     Active Substance: DOXORUBICIN HYDROCHLORIDE
     Dosage: UNK (100 MG)
     Route: 041
     Dates: start: 20190402, end: 20190402
  4. DOXIL [Suspect]
     Active Substance: DOXORUBICIN HYDROCHLORIDE
     Dosage: UNK (100 MG)
     Route: 041
     Dates: start: 20190215, end: 20190215
  5. RITUXIMAB. [Suspect]
     Active Substance: RITUXIMAB
     Dosage: UNK (750MG)
     Route: 041
     Dates: start: 20190214, end: 20190214
  6. ALLOPURINOL. [Concomitant]
     Active Substance: ALLOPURINOL
     Indication: PROPHYLAXIS
     Route: 048
     Dates: start: 20190214, end: 20190827
  7. DOXIL [Suspect]
     Active Substance: DOXORUBICIN HYDROCHLORIDE
     Indication: DIFFUSE LARGE B-CELL LYMPHOMA
     Dosage: UNK (100 MG)
     Route: 041
     Dates: start: 20190515, end: 20190515
  8. ENDOXAN 1G [Suspect]
     Active Substance: CYCLOPHOSPHAMIDE
     Route: 041
     Dates: start: 20190615, end: 20190615
  9. VINCRISTINE [Suspect]
     Active Substance: VINCRISTINE
     Route: 041
     Dates: start: 20190605
  10. RITUXIMAB. [Suspect]
     Active Substance: RITUXIMAB
     Dosage: UNK (750MG)
     Route: 041
     Dates: start: 20190604, end: 20190604
  11. RITUXIMAB. [Suspect]
     Active Substance: RITUXIMAB
     Dosage: UNK (750MG)
     Route: 041
     Dates: start: 20190702, end: 20190702
  12. PREDNISONE. [Suspect]
     Active Substance: PREDNISONE
     Route: 048
     Dates: start: 20190423, end: 20190427
  13. PARACETAMOL [Concomitant]
     Active Substance: ACETAMINOPHEN
     Indication: PROPHYLAXIS
     Route: 048
     Dates: start: 20190214, end: 20190604
  14. DEXAMETHASONE. [Concomitant]
     Active Substance: DEXAMETHASONE
     Indication: PROPHYLAXIS
     Route: 042
     Dates: start: 20190214, end: 20190807
  15. ACICLOVIR [Concomitant]
     Active Substance: ACYCLOVIR
     Indication: PROPHYLAXIS
     Route: 048
     Dates: start: 20190214, end: 20190827
  16. ENDOXAN 1G [Suspect]
     Active Substance: CYCLOPHOSPHAMIDE
     Route: 041
     Dates: start: 20190402, end: 20190402
  17. VINCRISTINE [Suspect]
     Active Substance: VINCRISTINE
     Route: 041
     Dates: start: 20190312, end: 20190312
  18. RITUXIMAB. [Suspect]
     Active Substance: RITUXIMAB
     Indication: DIFFUSE LARGE B-CELL LYMPHOMA
     Dosage: UNK (750MG)
     Route: 041
     Dates: start: 20190514, end: 20190514
  19. RITUXIMAB. [Suspect]
     Active Substance: RITUXIMAB
     Dosage: UNK (750MG)
     Route: 041
     Dates: start: 20190401, end: 20190401
  20. PREDNISONE. [Suspect]
     Active Substance: PREDNISONE
     Dosage: UNK (500 MG)
     Route: 048
     Dates: start: 20190402, end: 20190406
  21. RANITIDINE. [Concomitant]
     Active Substance: RANITIDINE
     Indication: PROPHYLAXIS
     Dosage: 1 AMPOULE, UNK
     Route: 042
     Dates: start: 20190214
  22. RAMIPRIL. [Concomitant]
     Active Substance: RAMIPRIL
     Indication: HYPERTENSION
     Route: 048
  23. DOXIL [Suspect]
     Active Substance: DOXORUBICIN HYDROCHLORIDE
     Dosage: UNK (100 MG)
     Route: 041
     Dates: start: 20190423, end: 20190423
  24. VINCRISTINE [Suspect]
     Active Substance: VINCRISTINE
     Indication: DIFFUSE LARGE B-CELL LYMPHOMA
     Route: 041
     Dates: start: 20190215, end: 20190215
  25. VINCRISTINE [Suspect]
     Active Substance: VINCRISTINE
     Route: 041
     Dates: start: 20190515, end: 20190515
  26. PREDNISONE. [Suspect]
     Active Substance: PREDNISONE
     Route: 048
     Dates: start: 20190515, end: 20190518
  27. COTRIM FORTE [Concomitant]
     Active Substance: SULFAMETHOXAZOLE\TRIMETHOPRIM
     Indication: PROPHYLAXIS
     Dosage: ONGOING
     Route: 048
     Dates: start: 20190214, end: 20190827
  28. DOXIL [Suspect]
     Active Substance: DOXORUBICIN HYDROCHLORIDE
     Dosage: UNK (100 MG)
     Route: 041
     Dates: start: 20190312, end: 20190312
  29. ENDOXAN 1G [Suspect]
     Active Substance: CYCLOPHOSPHAMIDE
     Route: 041
     Dates: start: 20190215, end: 20190215
  30. PREDNISONE. [Suspect]
     Active Substance: PREDNISONE
     Dosage: 500 UNK
     Route: 048
     Dates: start: 20190605
  31. UROMITEXAN [Concomitant]
     Active Substance: MESNA
     Indication: PROPHYLAXIS
     Route: 048
     Dates: start: 20190215, end: 20190605
  32. ATORVASTATIN [Concomitant]
     Active Substance: ATORVASTATIN
     Indication: HYPERCHOLESTEROLAEMIA
     Route: 048
  33. ENDOXAN 1G [Suspect]
     Active Substance: CYCLOPHOSPHAMIDE
     Route: 041
     Dates: start: 20190515, end: 20190515
  34. VINCRISTINE [Suspect]
     Active Substance: VINCRISTINE
     Route: 041
     Dates: start: 20190401, end: 20190401
  35. RITUXIMAB. [Suspect]
     Active Substance: RITUXIMAB
     Dosage: UNK (750MG)
     Route: 041
     Dates: start: 20190311, end: 20190311
  36. RITUXIMAB. [Suspect]
     Active Substance: RITUXIMAB
     Route: 041
     Dates: start: 20190807, end: 20190807
  37. DOXIL [Suspect]
     Active Substance: DOXORUBICIN HYDROCHLORIDE
     Dosage: UNK (100 MG)
     Route: 041
     Dates: start: 20190605, end: 20190605
  38. ENDOXAN 1G [Suspect]
     Active Substance: CYCLOPHOSPHAMIDE
     Indication: DIFFUSE LARGE B-CELL LYMPHOMA
     Route: 041
     Dates: start: 20190312, end: 20190312
  39. VINCRISTINE [Suspect]
     Active Substance: VINCRISTINE
     Route: 041
     Dates: start: 20190402, end: 20190402
  40. VINCRISTINE [Suspect]
     Active Substance: VINCRISTINE
     Route: 041
     Dates: start: 20190423, end: 20190423
  41. RITUXIMAB. [Suspect]
     Active Substance: RITUXIMAB
     Route: 041
     Dates: start: 20190423, end: 20190423
  42. PREDNISONE. [Suspect]
     Active Substance: PREDNISONE
     Indication: DIFFUSE LARGE B-CELL LYMPHOMA
     Dosage: UNK (500 MG)
     Route: 048
     Dates: start: 20190215, end: 20190219
  43. PREDNISONE. [Suspect]
     Active Substance: PREDNISONE
     Dosage: UNK
     Route: 048
     Dates: start: 20190312, end: 20190316
  44. FUROSEMIDE. [Concomitant]
     Active Substance: FUROSEMIDE
     Indication: PRODUCT USED FOR UNKNOWN INDICATION
     Dosage: UNK
     Route: 042
     Dates: start: 20190215
  45. FENISTIL [Concomitant]
     Active Substance: DIMETHINDENE
     Indication: PROPHYLAXIS
     Dosage: 1 AMPOULE
     Route: 042
     Dates: start: 20190214, end: 20190807

REACTIONS (19)
  - Oral herpes [Not Recovered/Not Resolved]
  - Stress [Not Recovered/Not Resolved]
  - White blood cell count decreased [Recovered/Resolved]
  - Dyspnoea [Not Recovered/Not Resolved]
  - Hypercalcaemia [Not Recovered/Not Resolved]
  - Polyneuropathy [Not Recovered/Not Resolved]
  - Red blood cell count decreased [Recovered/Resolved]
  - Fatigue [Not Recovered/Not Resolved]
  - Hypokalaemia [Not Recovered/Not Resolved]
  - Urinary tract infection [Not Recovered/Not Resolved]
  - Mucosal inflammation [Recovered/Resolved]
  - Alanine aminotransferase increased [Not Recovered/Not Resolved]
  - Lymphoedema [Not Recovered/Not Resolved]
  - Tachycardia [Recovered/Resolved]
  - Thrombocytopenia [Recovered/Resolved]
  - Memory impairment [Not Recovered/Not Resolved]
  - Protein total decreased [Not Recovered/Not Resolved]
  - Vertigo [Not Recovered/Not Resolved]
  - Anaemia [Recovered/Resolved]

NARRATIVE: CASE EVENT DATE: 20190214
